FAERS Safety Report 10084293 (Version 2)
Quarter: 2014Q2

REPORT INFORMATION
  Report Type: Report from Study
  Country: US (occurrence: US)
  Receive Date: 20140417
  Receipt Date: 20140425
  Transmission Date: 20141212
  Serious: Yes (Death)
  Sender: FDA-Public Use
  Company Number: US-ACTELION-A-US2014-97300

PATIENT
  Age: 62 Year
  Sex: Female

DRUGS (3)
  1. MACITENTAN [Suspect]
     Indication: PULMONARY ARTERIAL HYPERTENSION
     Dosage: 10 MG, QD
     Route: 048
     Dates: start: 20140318
  2. REMODULIN [Concomitant]
     Route: 042
  3. REVATIO [Concomitant]

REACTIONS (2)
  - Cardiac failure [Fatal]
  - Renal failure [Fatal]
